FAERS Safety Report 10519822 (Version 1)
Quarter: 2014Q4

REPORT INFORMATION
  Report Type: Spontaneous
  Country: US (occurrence: None)
  Receive Date: 20141014
  Receipt Date: 20141014
  Transmission Date: 20150528
  Serious: No
  Sender: FDA-Public Use
  Company Number: DL2014-0761

PATIENT
  Age: 23 Year
  Sex: Female

DRUGS (3)
  1. MIFEPRISTONE TABLETS, 200 MG (DANCO LABS) [Suspect]
     Active Substance: MIFEPRISTONE
     Indication: ABORTION INDUCED
     Dates: start: 20140703
  2. MISOPROLOL [Suspect]
     Active Substance: MISOPROSTOL
     Route: 002
     Dates: start: 20140704
  3. AZITHROMYCIN [Concomitant]
     Active Substance: AZITHROMYCIN ANHYDROUS

REACTIONS (2)
  - Abortion incomplete [None]
  - Haemorrhage [None]

NARRATIVE: CASE EVENT DATE: 20140714
